FAERS Safety Report 19445665 (Version 1)
Quarter: 2021Q2

REPORT INFORMATION
  Report Type: Spontaneous
  Country: US (occurrence: US)
  Receive Date: 20210622
  Receipt Date: 20210622
  Transmission Date: 20210717
  Serious: No
  Sender: FDA-Public Use
  Company Number: US-GLAXOSMITHKLINE-US2021133162

PATIENT
  Sex: Male

DRUGS (1)
  1. ADVAIR DISKUS [Suspect]
     Active Substance: FLUTICASONE PROPIONATE\SALMETEROL XINAFOATE
     Indication: COUGH
     Dosage: 1 PUFF(S), BID (250/50MCG)
     Route: 055
     Dates: start: 202106

REACTIONS (5)
  - Cough [Unknown]
  - Off label use [Unknown]
  - Blood pressure increased [Unknown]
  - Drug ineffective for unapproved indication [Unknown]
  - Wrong technique in device usage process [Unknown]
